FAERS Safety Report 8431918-0 (Version None)
Quarter: 2012Q2

REPORT INFORMATION
  Report Type: 
  Country: None (occurrence: None)
  Receive Date: 20120606
  Receipt Date: 20120524
  Transmission Date: 20120825
  Serious: Yes (Hospitalization, Other)
  Sender: FDA-Public Use
  Company Number: DSJ-2012-05657

PATIENT
  Age: 64 Year
  Sex: Male

DRUGS (3)
  1. BENICAR [Suspect]
     Indication: HYPERTENSION
     Dosage: 20 MG (20 MG, 1 IN 1 D), PER ORAL, 20 MG (20 MG, 1 IN 1 D), PER ORAL
     Route: 048
     Dates: start: 20090101, end: 20120314
  2. BENICAR [Suspect]
     Indication: HYPERTENSION
     Dosage: 20 MG (20 MG, 1 IN 1 D), PER ORAL, 20 MG (20 MG, 1 IN 1 D), PER ORAL
     Route: 048
     Dates: start: 20120101
  3. FUROSEMIDE [Suspect]
     Indication: FLUID RETENTION
     Dosage: PER ORAL
     Route: 048
     Dates: start: 20120101

REACTIONS (5)
  - DRUG ADMINISTRATION ERROR [None]
  - RESPIRATORY FAILURE [None]
  - PNEUMONIA [None]
  - TREATMENT NONCOMPLIANCE [None]
  - FLUID RETENTION [None]
